FAERS Safety Report 13843916 (Version 1)
Quarter: 2017Q3

REPORT INFORMATION
  Report Type: Spontaneous
  Country: IT (occurrence: IT)
  Receive Date: 20170808
  Receipt Date: 20170808
  Transmission Date: 20171127
  Serious: Yes (Hospitalization, Other)
  Sender: FDA-Public Use
  Company Number: IT-AUROBINDO-AUR-APL-2014-03166

PATIENT
  Age: 23 Year
  Sex: Male

DRUGS (4)
  1. OLANZAPINA AUROBINDO PHARMA ITALIA COMPRESSE ORODISPERSIBILI 5MG [Suspect]
     Active Substance: OLANZAPINE
     Indication: PRODUCT USED FOR UNKNOWN INDICATION
     Dosage: 5 MG,TOTAL,
     Route: 048
     Dates: start: 20131220, end: 20131220
  2. EFFEXOR [Suspect]
     Active Substance: VENLAFAXINE HYDROCHLORIDE
     Indication: PRODUCT USED FOR UNKNOWN INDICATION
     Dosage: 2 DF,TOTAL,
     Route: 048
     Dates: start: 20131220, end: 20131220
  3. XANAX [Suspect]
     Active Substance: ALPRAZOLAM
     Indication: PRODUCT USED FOR UNKNOWN INDICATION
     Dosage: 2 DF,TOTAL,
     Route: 048
     Dates: start: 20131220, end: 20131220
  4. LENDORMIN [Suspect]
     Active Substance: BROTIZOLAM
     Indication: PRODUCT USED FOR UNKNOWN INDICATION
     Dosage: 2 DF,TOTAL,
     Route: 048
     Dates: start: 20131220, end: 20131220

REACTIONS (5)
  - Sopor [Recovering/Resolving]
  - Mydriasis [Recovering/Resolving]
  - Drug abuse [Recovered/Resolved]
  - Intentional self-injury [Recovering/Resolving]
  - Headache [Recovering/Resolving]

NARRATIVE: CASE EVENT DATE: 20131220
